FAERS Safety Report 26130002 (Version 1)
Quarter: 2025Q4

REPORT INFORMATION
  Report Type: Spontaneous
  Country: EU (occurrence: EU)
  Receive Date: 20251208
  Receipt Date: 20251208
  Transmission Date: 20260118
  Serious: Yes (Hospitalization, Other)
  Sender: GLAXOSMITHKLINE
  Company Number: None

PATIENT
  Age: 71 Year
  Sex: Male
  Weight: 73 kg

DRUGS (9)
  1. VALACYCLOVIR HYDROCHLORIDE [Suspect]
     Active Substance: VALACYCLOVIR HYDROCHLORIDE
     Indication: Plasma cell myeloma
     Dosage: 1 G, QD
  2. AMOXICILLIN [Suspect]
     Active Substance: AMOXICILLIN
     Indication: Plasma cell myeloma
     Dosage: 1 G, QD
  3. BACTRIM [Suspect]
     Active Substance: SULFAMETHOXAZOLE\TRIMETHOPRIM
     Indication: Plasma cell myeloma
     Dosage: UNK, 3W (MONDAYS, WEDNESDAYS, FRIDAYS)
  4. REVLIMID [Suspect]
     Active Substance: LENALIDOMIDE
     Indication: Plasma cell myeloma
     Dosage: 25 MG, QD (DURING 21 DAYS OF THE CYCLE ON 28)
  5. VELCADE [Suspect]
     Active Substance: BORTEZOMIB
     Indication: Plasma cell myeloma
     Dosage: 1 DF, WE (EVERY MONDAY)
  6. DARZALEX [Suspect]
     Active Substance: DARATUMUMAB
     Indication: Plasma cell myeloma
     Dosage: 1 DF, WE (THEN EVERY 15 DAYS)
  7. DEXAMETHASONE [Suspect]
     Active Substance: DEXAMETHASONE
     Indication: Plasma cell myeloma
     Dosage: 1 DF, WE (EVERY MONDAY)
  8. CETIRIZINE HYDROCHLORIDE [Suspect]
     Active Substance: CETIRIZINE HYDROCHLORIDE
     Indication: Plasma cell myeloma
     Dosage: 10 MG, WE (EVERY MONDAY)
  9. ELIQUIS [Suspect]
     Active Substance: APIXABAN
     Indication: Plasma cell myeloma
     Dosage: 5 MG, QD

REACTIONS (1)
  - Drug reaction with eosinophilia and systemic symptoms [Not Recovered/Not Resolved]

NARRATIVE: CASE EVENT DATE: 20251107
